FAERS Safety Report 8497217 (Version 3)
Quarter: 2013Q3

REPORT INFORMATION
  Report Type: Spontaneous
  Country: US (occurrence: US)
  Receive Date: 20120406
  Receipt Date: 20130718
  Transmission Date: 20140515
  Serious: No
  Sender: FDA-Public Use
  Company Number: US-PFIZER INC-2012084577

PATIENT
  Age: 77 Year
  Sex: Male
  Weight: 82.54 kg

DRUGS (7)
  1. TOVIAZ [Suspect]
     Indication: HYPERTONIC BLADDER
     Dosage: 8 MG, 1X/DAY
     Route: 048
     Dates: start: 2011
  2. TOVIAZ [Suspect]
     Dosage: 4 MG, 2X/DAY
     Route: 048
  3. TOVIAZ [Suspect]
     Dosage: 8MG ONCE A DAY AND 4MG ONCE A DAY ON ALTERNATE DAYS
     Route: 048
  4. TOVIAZ [Suspect]
     Dosage: UNK, 2X/DAY
     Route: 048
     Dates: start: 2011
  5. TOPROL [Concomitant]
     Indication: HYPERTENSION
     Dosage: 25 MG, 1X/DAY
  6. DONEPEZIL [Concomitant]
     Indication: MEMORY IMPAIRMENT
     Dosage: 10 MG, 1X/DAY
  7. FUROSEMIDE [Concomitant]
     Indication: DIURETIC THERAPY
     Dosage: UNK

REACTIONS (3)
  - Wrong technique in drug usage process [Unknown]
  - Inappropriate schedule of drug administration [Unknown]
  - Drug ineffective [Unknown]
